FAERS Safety Report 7055351-1 (Version None)
Quarter: 2010Q4

REPORT INFORMATION
  Report Type: 
  Country: None (occurrence: None)
  Receive Date: 20101019
  Receipt Date: 20101019
  Transmission Date: 20110411
  Serious: Yes (Other)
  Sender: FDA-Public Use
  Company Number: None

PATIENT
  Age: 36 Year
  Sex: Male
  Weight: 140.6151 kg

DRUGS (1)
  1. DOXYCYCLINE [Suspect]
     Indication: LYME DISEASE
     Dosage: 200MG 1 PO
     Route: 048
     Dates: start: 20100715, end: 20100722

REACTIONS (1)
  - LUPUS-LIKE SYNDROME [None]
